FAERS Safety Report 17783390 (Version 1)
Quarter: 2020Q2

REPORT INFORMATION
  Report Type: Spontaneous
  Country: US (occurrence: US)
  Receive Date: 20200514
  Receipt Date: 20200514
  Transmission Date: 20200714
  Serious: No
  Sender: FDA-Public Use
  Company Number: None

PATIENT
  Age: 59 Year
  Sex: Female
  Weight: 68.85 kg

DRUGS (8)
  1. BENTYL [Concomitant]
     Active Substance: DICYCLOMINE HYDROCHLORIDE
  2. EXCEDRIN [Concomitant]
     Active Substance: ACETAMINOPHEN\ASPIRIN\CAFFEINE
  3. ZYRTEC [Concomitant]
     Active Substance: CETIRIZINE HYDROCHLORIDE
  4. RHINOCORT [Concomitant]
     Active Substance: BUDESONIDE
  5. NEXIUM [Concomitant]
     Active Substance: ESOMEPRAZOLE MAGNESIUM
  6. CLOCETASOL CREAM [Concomitant]
  7. CEFDINIR. [Suspect]
     Active Substance: CEFDINIR
     Indication: SINUSITIS
  8. STELARA [Concomitant]
     Active Substance: USTEKINUMAB

REACTIONS (2)
  - Crying [None]
  - Mood altered [None]

NARRATIVE: CASE EVENT DATE: 20200512
